FAERS Safety Report 19476655 (Version 1)
Quarter: 2021Q2

REPORT INFORMATION
  Report Type: Spontaneous
  Country: US (occurrence: US)
  Receive Date: 20210630
  Receipt Date: 20210630
  Transmission Date: 20210717
  Serious: Yes (Other)
  Sender: FDA-Public Use
  Company Number: US-ACCORD-219589

PATIENT
  Age: 42 Year
  Sex: Male
  Weight: 102.06 kg

DRUGS (3)
  1. ALLOPURINOL ACCORD [Suspect]
     Active Substance: ALLOPURINOL
     Indication: GOUT
     Dosage: ONE TABLET A DAY
     Route: 048
     Dates: start: 2019
  2. PANTOPRAZOLE SODIUM. [Concomitant]
     Active Substance: PANTOPRAZOLE SODIUM
  3. ATORVASTATIN/ATORVASTATIN CALCIUM [Suspect]
     Active Substance: ATORVASTATIN CALCIUM
     Indication: BLOOD CHOLESTEROL
     Dosage: ONCE A DAY
     Route: 048
     Dates: start: 2019

REACTIONS (8)
  - Pain in jaw [Unknown]
  - Pulmonary mass [Unknown]
  - Haemoptysis [Unknown]
  - Palpitations [Unknown]
  - Arteriosclerosis [Unknown]
  - Chest pain [Unknown]
  - Gastrointestinal haemorrhage [Unknown]
  - Nausea [Unknown]
